FAERS Safety Report 5994287-1 (Version None)
Quarter: 2008Q4

REPORT INFORMATION
  Report Type: 
  Country: None (occurrence: None)
  Receive Date: 20081212
  Receipt Date: 20080910
  Transmission Date: 20090506
  Serious: Yes (Other)
  Sender: FDA-Public Use
  Company Number: US-ABBOTT-08P-163-0474757-00

PATIENT
  Age: 47 Year
  Sex: Female

DRUGS (4)
  1. ADALIMUMAB [Suspect]
     Indication: RHEUMATOID ARTHRITIS
  2. INFLIXIMAB [Suspect]
     Indication: RHEUMATOID ARTHRITIS
     Dosage: NOT REPORTED
     Dates: start: 20050501
  3. INFLIXIMAB [Suspect]
     Dosage: NOT REPORTED
  4. METHOTREXATE [Concomitant]
     Indication: RHEUMATOID ARTHRITIS

REACTIONS (1)
  - SYSTEMIC LUPUS ERYTHEMATOSUS [None]
